FAERS Safety Report 18016446 (Version 1)
Quarter: 2020Q3

REPORT INFORMATION
  Report Type: Report from Study
  Country: US (occurrence: US)
  Receive Date: 20200713
  Receipt Date: 20200713
  Transmission Date: 20201103
  Serious: Yes (Death, Hospitalization)
  Sender: FDA-Public Use
  Company Number: US-ACTELION-A-US2020-204963

PATIENT
  Age: 67 Year
  Sex: Female
  Weight: 99.77 kg

DRUGS (6)
  1. VELETRI [Suspect]
     Active Substance: EPOPROSTENOL
     Dosage: 48 NG/KG, PER MIN
     Route: 042
  2. REMODULIN [Concomitant]
     Active Substance: TREPROSTINIL
  3. WARFARIN [Concomitant]
     Active Substance: WARFARIN
  4. VELETRI [Suspect]
     Active Substance: EPOPROSTENOL
     Indication: PULMONARY ARTERIAL HYPERTENSION
     Dosage: 48 NG/KG, PER MIN
     Route: 042
  5. ADEMPAS [Concomitant]
     Active Substance: RIOCIGUAT
  6. XARELTO [Concomitant]
     Active Substance: RIVAROXABAN

REACTIONS (12)
  - Application site erythema [Unknown]
  - Constipation [Unknown]
  - Gastrointestinal disorder [Fatal]
  - Skin irritation [Unknown]
  - Malaise [Unknown]
  - Device alarm issue [Recovered/Resolved]
  - Application site pruritus [Unknown]
  - Device related infection [Unknown]
  - Headache [Unknown]
  - Device occlusion [Recovered/Resolved]
  - Nausea [Unknown]
  - Device delivery system issue [Unknown]

NARRATIVE: CASE EVENT DATE: 20200609
